FAERS Safety Report 5285033-8 (Version None)
Quarter: 2007Q2

REPORT INFORMATION
  Report Type: 
  Country: None (occurrence: None)
  Receive Date: 20070403
  Receipt Date: 20061017
  Transmission Date: 20071010
  Serious: Yes (Other)
  Sender: FDA-Public Use
  Company Number: US-PFIZER INC-2007021149

PATIENT
  Sex: Male

DRUGS (1)
  1. XANAX [Suspect]
     Dosage: TEXT:UNKNOWN

REACTIONS (3)
  - AFFECTIVE DISORDER [None]
  - COGNITIVE DISORDER [None]
  - DRUG WITHDRAWAL SYNDROME [None]
